FAERS Safety Report 6234282-0 (Version None)
Quarter: 2009Q2

REPORT INFORMATION
  Report Type: 
  Country: None (occurrence: None)
  Receive Date: 20090618
  Receipt Date: 20090608
  Transmission Date: 20091009
  Serious: Yes (Other)
  Sender: FDA-Public Use
  Company Number: US-AMGEN-QUU350553

PATIENT
  Sex: Female

DRUGS (3)
  1. NEULASTA [Suspect]
     Indication: CHEMOTHERAPY
     Route: 065
     Dates: start: 20090602
  2. UNSPECIFIED ANTINEOPLASTIC AGENT [Concomitant]
  3. IRON [Concomitant]

REACTIONS (1)
  - COLITIS ULCERATIVE [None]
